FAERS Safety Report 13954054 (Version 1)
Quarter: 2017Q3

REPORT INFORMATION
  Report Type: Spontaneous
  Country: US (occurrence: None)
  Receive Date: 20170909
  Receipt Date: 20170909
  Transmission Date: 20171128
  Serious: Yes (Hospitalization)
  Sender: FDA-Public Use
  Company Number: None

PATIENT
  Age: 56 Year
  Sex: Male

DRUGS (1)
  1. DABIGATRAN [Suspect]
     Active Substance: DABIGATRAN
     Indication: ATRIAL FIBRILLATION
     Route: 048
     Dates: start: 20131007, end: 20170820

REACTIONS (5)
  - Liver disorder [None]
  - International normalised ratio abnormal [None]
  - Cardiac failure [None]
  - Epistaxis [None]
  - Acute kidney injury [None]

NARRATIVE: CASE EVENT DATE: 20170821
